FAERS Safety Report 8613721-1 (Version None)
Quarter: 2012Q3

REPORT INFORMATION
  Report Type: 
  Country: None (occurrence: None)
  Receive Date: 20120823
  Receipt Date: 20120814
  Transmission Date: 20120928
  Serious: Yes (Other)
  Sender: FDA-Public Use
  Company Number: US-BIOGENIDEC-2012BI032656

PATIENT
  Sex: Male

DRUGS (7)
  1. AVONEX [Suspect]
     Route: 030
  2. ALLEGRA-D 12 HOUR [Concomitant]
     Route: 048
  3. ADVAIR DISKUS 100/50 [Concomitant]
  4. AVONEX [Suspect]
     Indication: MULTIPLE SCLEROSIS
     Route: 030
     Dates: start: 20100908
  5. SINGULAIR [Concomitant]
     Route: 048
  6. PROAIR HFA [Concomitant]
  7. ASACOL [Concomitant]
     Route: 048

REACTIONS (2)
  - CROHN'S DISEASE [None]
  - ASTHMA [None]
